FAERS Safety Report 17754562 (Version 2)
Quarter: 2020Q3

REPORT INFORMATION
  Report Type: Spontaneous
  Country: US (occurrence: US)
  Receive Date: 20200507
  Receipt Date: 20200708
  Transmission Date: 20201102
  Serious: Yes (Hospitalization, Other)
  Sender: FDA-Public Use
  Company Number: US-009507513-1908USA010272

PATIENT
  Sex: Male

DRUGS (34)
  1. HAVRIX [Concomitant]
     Active Substance: HEPATITIS A VIRUS STRAIN HM175 ANTIGEN (FORMALDEHYDE INACTIVATED)
     Indication: PROPHYLAXIS
     Dosage: 1.0 MILLILITER; STRENGTH: 1440 U/ML VIAL
     Route: 030
     Dates: start: 20141007, end: 20141007
  2. HYDROXYZINE HYDROCHLORIDE. [Concomitant]
     Active Substance: HYDROXYZINE HYDROCHLORIDE
     Indication: PRURITUS
     Dosage: DOSAGE: 25 MG
     Dates: start: 201312, end: 201502
  3. VALIUM [Concomitant]
     Active Substance: DIAZEPAM
     Indication: ANXIETY
     Dosage: DOSAGE: 10 MG
     Dates: start: 201302, end: 201502
  4. MIRALAX [Concomitant]
     Active Substance: POLYETHYLENE GLYCOL 3350
     Indication: CONSTIPATION
     Dosage: DOSAGE: 527 MG
     Dates: start: 201201, end: 201501
  5. FUROSEMIDE. [Concomitant]
     Active Substance: FUROSEMIDE
     Indication: DIURETIC THERAPY
     Dosage: DOSAGE: 145 MG
     Dates: start: 201310, end: 201501
  6. SKELAXIN [Concomitant]
     Active Substance: METAXALONE
     Indication: ANALGESIC THERAPY
     Dosage: DOSAGE: 800 MG
     Dates: start: 201201, end: 201503
  7. ZOSTAVAX [Suspect]
     Active Substance: VARICELLA-ZOSTER VIRUS STRAIN OKA/MERCK LIVE ANTIGEN
     Indication: PROPHYLAXIS
     Route: 058
     Dates: start: 20141007
  8. OPANA ER [Concomitant]
     Active Substance: OXYMORPHONE HYDROCHLORIDE
     Indication: ANALGESIC THERAPY
     Dosage: DOSAGE: 30 MG
     Dates: start: 201201, end: 201412
  9. AMLODIPINE BESYLATE. [Concomitant]
     Active Substance: AMLODIPINE BESYLATE
     Indication: CHEST PAIN
     Dosage: DOSAGE: 10 MG
     Dates: start: 201201, end: 201502
  10. KLOR?CON [Concomitant]
     Active Substance: POTASSIUM CHLORIDE
     Indication: BLOOD POTASSIUM DECREASED
     Dosage: DOSAGE: 10 MEQ
     Dates: start: 201201, end: 201501
  11. ADVAIR HFA [Concomitant]
     Active Substance: FLUTICASONE PROPIONATE\SALMETEROL XINAFOATE
     Indication: CHRONIC OBSTRUCTIVE PULMONARY DISEASE
  12. MYRBETRIQ [Concomitant]
     Active Substance: MIRABEGRON
     Indication: HYPERTONIC BLADDER
     Dosage: DOSAGE: 50 MG
     Dates: start: 201309, end: 201410
  13. PNEUMOVAX 23 [Suspect]
     Active Substance: PNEUMOCOCCAL VACCINE, POLYVALENT 23
     Indication: PROPHYLAXIS
     Dosage: .5 MILLILITER
     Route: 030
     Dates: start: 20141007
  14. ROPINIROLE. [Concomitant]
     Active Substance: ROPINIROLE
     Indication: RESTLESS LEGS SYNDROME
     Dosage: DOSAGE: 1 MG
  15. TRICOR [Concomitant]
     Active Substance: FENOFIBRATE
     Indication: BLOOD CHOLESTEROL ABNORMAL
     Dosage: DOSAGE: 145 MG
     Dates: start: 201201, end: 201501
  16. NEURONTIN [Concomitant]
     Active Substance: GABAPENTIN
     Indication: NEURALGIA
     Dosage: DOSAGE: 800 MG
     Dates: start: 201201, end: 201503
  17. METHYLPREDNISOLONE. [Concomitant]
     Active Substance: METHYLPREDNISOLONE
     Indication: INFLAMMATION
     Dosage: DOSAGE: 4 MG
     Dates: start: 201307, end: 201412
  18. LISINOPRIL AND HYDROCHLOROTHIAZIDE [Concomitant]
     Active Substance: HYDROCHLOROTHIAZIDE\LISINOPRIL
     Indication: HYPERTENSION
     Dosage: DOSAGE: 20?25 MG
     Dates: start: 201201, end: 201501
  19. CYMBALTA [Concomitant]
     Active Substance: DULOXETINE HYDROCHLORIDE
     Indication: ANTIDEPRESSANT THERAPY
  20. STERILE DILUENT (WATER) [Suspect]
     Active Substance: WATER
     Indication: PROPHYLAXIS
     Dosage: 0.65 MILLILITER (DILUTED DOSE)
     Route: 058
     Dates: start: 20141007, end: 20141007
  21. XOPENEX [Concomitant]
     Active Substance: LEVALBUTEROL HYDROCHLORIDE
     Dosage: DOSAGE: 15 G
     Dates: start: 201201, end: 201501
  22. GENERLAC [Concomitant]
     Active Substance: LACTULOSE
     Indication: CONSTIPATION
     Dosage: DOSAGE: 15 ML SOLUTION
     Dates: start: 201501, end: 201502
  23. TOPIRAMATE. [Concomitant]
     Active Substance: TOPIRAMATE
     Indication: ANALGESIC THERAPY
     Dosage: DOSAGE: 50 MG
     Dates: start: 201404, end: 201503
  24. TAMSULOSIN HYDROCHLORIDE. [Concomitant]
     Active Substance: TAMSULOSIN HYDROCHLORIDE
     Indication: BENIGN PROSTATIC HYPERPLASIA
     Dosage: DOSAGE: 0.4 MG
     Dates: start: 201201
  25. NEURONTIN [Concomitant]
     Active Substance: GABAPENTIN
     Indication: SEIZURE
  26. CORTICOSTEROIDS (UNSPECIFIED) [Concomitant]
     Active Substance: UNSPECIFIED INGREDIENT
     Indication: SPINAL DISORDER
     Dosage: UNK
     Dates: start: 201203, end: 201412
  27. NEXIUM [Concomitant]
     Active Substance: ESOMEPRAZOLE MAGNESIUM
     Indication: GASTROOESOPHAGEAL REFLUX DISEASE
     Dosage: DOSAGE: 40 MG
     Dates: start: 201205, end: 201501
  28. STALEVO [Concomitant]
     Active Substance: CARBIDOPA\ENTACAPONE\LEVODOPA
     Indication: PARKINSON^S DISEASE
     Dosage: UNK
     Route: 048
     Dates: start: 201108, end: 201501
  29. CITALOPRAM [Concomitant]
     Active Substance: CITALOPRAM HYDROBROMIDE
     Indication: DEPRESSION
     Dosage: DOSAGE: 20 MG
     Dates: start: 201112, end: 201503
  30. AMOXICILLIN. [Concomitant]
     Active Substance: AMOXICILLIN
     Indication: ANTIBIOTIC THERAPY
     Dosage: DOSAGE: 500 MG
     Dates: start: 201205, end: 201412
  31. NORCO [Concomitant]
     Active Substance: ACETAMINOPHEN\HYDROCODONE BITARTRATE
     Indication: PAIN
     Dosage: DOSAGE: 10?325
     Dates: start: 201203, end: 201501
  32. ADVAIR HFA [Concomitant]
     Active Substance: FLUTICASONE PROPIONATE\SALMETEROL XINAFOATE
     Indication: ASTHMA
     Dosage: DOSAGE: 250?50 MCG
     Route: 055
     Dates: start: 201210, end: 201410
  33. TOPIRAMATE. [Concomitant]
     Active Substance: TOPIRAMATE
     Indication: SEIZURE
  34. CYMBALTA [Concomitant]
     Active Substance: DULOXETINE HYDROCHLORIDE
     Indication: NEURALGIA
     Dosage: DOSAGE 60 MG AND 30 MG
     Dates: start: 201112, end: 201501

REACTIONS (8)
  - Blindness [Unknown]
  - Pneumonia [Unknown]
  - Fibromyalgia [Unknown]
  - Neurosurgery [Unknown]
  - Contraindicated product administered [Unknown]
  - Cyst [Unknown]
  - Herpes zoster [Not Recovered/Not Resolved]
  - Psoriasis [Unknown]

NARRATIVE: CASE EVENT DATE: 20141007
